FAERS Safety Report 24571557 (Version 2)
Quarter: 2024Q4

REPORT INFORMATION
  Report Type: Spontaneous
  Country: US (occurrence: US)
  Receive Date: 20241101
  Receipt Date: 20241126
  Transmission Date: 20250114
  Serious: Yes (Other)
  Sender: GRAVITI PHARMACEUTICALS PRIVATE LIMITED
  Company Number: US-GRAVITIPHARMA-GRA-2410-US-LIT-0529

PATIENT
  Age: 16 Year
  Sex: Female

DRUGS (2)
  1. BUPROPION HYDROCHLORIDE [Suspect]
     Active Substance: BUPROPION HYDROCHLORIDE
     Indication: Product used for unknown indication
     Dosage: 9 TO 12 G (30 TO 40 TABLETS)
     Route: 048
  2. ALCOHOL [Concomitant]
     Active Substance: ALCOHOL
     Indication: Product used for unknown indication
     Dosage: 8 TO 9 ALCOHOLIC BEVERAGES
     Route: 065

REACTIONS (5)
  - Partial seizures [Recovered/Resolved]
  - Mental status changes [Recovered/Resolved]
  - Haemodynamic instability [Recovered/Resolved]
  - Areflexia [Recovered/Resolved]
  - Intentional overdose [Unknown]
